FAERS Safety Report 10420072 (Version 1)
Quarter: 2014Q3

REPORT INFORMATION
  Report Type: Spontaneous
  Country: GB (occurrence: None)
  Receive Date: 20140828
  Receipt Date: 20140828
  Transmission Date: 20150326
  Serious: Yes (Disabling)
  Sender: FDA-Public Use
  Company Number: AUR-APL-2014-09031

PATIENT
  Age: 46 Year
  Sex: Male
  Weight: 100.6 kg

DRUGS (8)
  1. AZATHIOPRINE. [Suspect]
     Active Substance: AZATHIOPRINE
     Indication: COLITIS ULCERATIVE
     Dates: start: 20140423, end: 20140609
  2. ADCAL /07357001/ (CALCIUM CARBONATE) [Concomitant]
  3. IOPIDINE /00948502/ (APRACLONIDINE HYDROCHLORIDE) [Concomitant]
  4. ACULAR (KETOROLAC TROMETHAMINE) [Concomitant]
  5. COSOPT (DORZOLAMIDE HYDROCHLORIDE, TIMOLOL MALEATE) [Concomitant]
  6. ASACOL [Concomitant]
     Active Substance: MESALAMINE
  7. PRED FORTE (PREDNISOLONE ACETATE) [Concomitant]
  8. AMLODIPINE [Suspect]
     Active Substance: AMLODIPINE BESYLATE
     Indication: PRODUCT USED FOR UNKNOWN INDICATION
     Route: 048
     Dates: start: 20080423, end: 20140801

REACTIONS (4)
  - Drug interaction [None]
  - Abdominal distension [None]
  - Rectal haemorrhage [None]
  - Eye pain [None]

NARRATIVE: CASE EVENT DATE: 20140331
